FAERS Safety Report 22800196 (Version 7)
Quarter: 2025Q2

REPORT INFORMATION
  Report Type: Report from Study
  Country: CA (occurrence: CA)
  Receive Date: 20230808
  Receipt Date: 20250502
  Transmission Date: 20250717
  Serious: Yes (Other)
  Sender: HLS THERAPEUTICS
  Company Number: CA-HLS-202301897

PATIENT
  Age: 28 Year
  Sex: Female
  Weight: 64 kg

DRUGS (10)
  1. CLOZARIL [Suspect]
     Active Substance: CLOZAPINE
     Indication: Schizophrenia
     Route: 048
     Dates: start: 20240418
  2. CLOZARIL [Suspect]
     Active Substance: CLOZAPINE
     Indication: Schizophrenia
     Route: 048
     Dates: start: 20230718, end: 20230804
  3. CLOZARIL [Suspect]
     Active Substance: CLOZAPINE
     Indication: Schizophrenia
     Route: 048
     Dates: start: 202405
  4. Jamp-Fer [Concomitant]
     Indication: Product used for unknown indication
     Route: 065
  5. LACTULOSE [Concomitant]
     Active Substance: LACTULOSE
     Indication: Product used for unknown indication
     Route: 048
  6. BENZTROPINE [Concomitant]
     Active Substance: BENZTROPINE
     Indication: Product used for unknown indication
     Route: 048
  7. GLUCOPHAGE [Concomitant]
     Active Substance: METFORMIN HYDROCHLORIDE
     Indication: Product used for unknown indication
     Route: 048
  8. PEG 3350 [Concomitant]
     Active Substance: POLYETHYLENE GLYCOL 3350
     Indication: Product used for unknown indication
     Route: 048
  9. ALESSE 28 [Concomitant]
     Active Substance: ETHINYL ESTRADIOL\LEVONORGESTREL
     Indication: Product used for unknown indication
     Route: 048
  10. FERAMAX [Concomitant]
     Active Substance: IRON\POLYSACCHARIDES
     Indication: Product used for unknown indication
     Route: 048

REACTIONS (12)
  - Anaemia [Unknown]
  - Myocarditis [Unknown]
  - Cardiomyopathy [Unknown]
  - Full blood count abnormal [Unknown]
  - Heart rate increased [Unknown]
  - Haemoglobin decreased [Not Recovered/Not Resolved]
  - Menometrorrhagia [Unknown]
  - Cardiac valve disease [Unknown]
  - Polycystic ovarian syndrome [Unknown]
  - Platelet count increased [Not Recovered/Not Resolved]
  - Pulmonary valve incompetence [Unknown]
  - Tricuspid valve incompetence [Unknown]

NARRATIVE: CASE EVENT DATE: 20250102
